FAERS Safety Report 26137765 (Version 1)
Quarter: 2025Q4

REPORT INFORMATION
  Report Type: Spontaneous
  Country: US (occurrence: US)
  Receive Date: 20251209
  Receipt Date: 20251209
  Transmission Date: 20260119
  Serious: No
  Sender: RANBAXY
  Company Number: US-MIMS-SUN-2025-USA-54166

PATIENT
  Age: 84 Year
  Sex: Male

DRUGS (1)
  1. DAPSONE [Suspect]
     Active Substance: DAPSONE
     Indication: Skin lesion
     Route: 061

REACTIONS (2)
  - Product dose omission issue [Unknown]
  - Product quality issue [Unknown]
